FAERS Safety Report 4864866-3 (Version None)
Quarter: 2005Q4

REPORT INFORMATION
  Report Type: 
  Country: None (occurrence: None)
  Receive Date: 20051201
  Receipt Date: 20050725
  Transmission Date: 20060501
  Serious: No
  Sender: FDA-Public Use
  Company Number: 2005PV000549

PATIENT
  Age: 51 Year
  Sex: Female
  Weight: 129.7287 kg

DRUGS (8)
  1. BYETTA [Suspect]
     Indication: INSULIN RESISTANT DIABETES
     Dosage: 5 MCG; BID; SC
     Route: 058
     Dates: start: 20050718, end: 20050701
  2. SPIRONOLACTONE [Concomitant]
  3. METFORMIN [Concomitant]
  4. HYZAAR [Concomitant]
  5. ESCITALOPRAM OXALATE [Concomitant]
  6. DOXYCYCLINE [Concomitant]
  7. DIURETICS [Concomitant]
  8. HUMULIN N [Concomitant]

REACTIONS (7)
  - ABDOMINAL PAIN UPPER [None]
  - BLOOD GLUCOSE DECREASED [None]
  - DIARRHOEA [None]
  - DIZZINESS [None]
  - HEADACHE [None]
  - NAUSEA [None]
  - VOMITING [None]
